FAERS Safety Report 20365245 (Version 3)
Quarter: 2022Q1

REPORT INFORMATION
  Report Type: Report from Study
  Country: AR (occurrence: AR)
  Receive Date: 20220122
  Receipt Date: 20220309
  Transmission Date: 20220424
  Serious: Yes (Other)
  Sender: FDA-Public Use
  Company Number: AR-NOVARTISPH-NVSC2022AR012473

PATIENT
  Sex: Female

DRUGS (5)
  1. DIOVAN [Suspect]
     Active Substance: VALSARTAN
     Indication: Blood pressure measurement
     Dosage: UNK
     Route: 065
  2. DIOVAN [Suspect]
     Active Substance: VALSARTAN
     Dosage: 1 DOSAGE FORM, QD, (STARTED 10 YEARS AGO)
     Route: 065
  3. PYRIDOXINE HYDROCHLORIDE [Concomitant]
     Active Substance: PYRIDOXINE HYDROCHLORIDE
     Indication: Prophylaxis
     Dosage: UNK EVERY 3 OR 4 MONTHS
     Route: 065
  4. PYRIDOXINE HYDROCHLORIDE [Concomitant]
     Active Substance: PYRIDOXINE HYDROCHLORIDE
     Dosage: UNK, (EVERY 6 MONTHS)
     Route: 065
  5. ANASTROZOLE [Concomitant]
     Active Substance: ANASTROZOLE
     Indication: Product used for unknown indication
     Dosage: 1 DOSAGE FORM, QD, (DAILY AFTER LUNCH)
     Route: 065

REACTIONS (7)
  - Motor dysfunction [Unknown]
  - Breast cancer [Unknown]
  - Memory impairment [Unknown]
  - Dysstasia [Unknown]
  - Blood pressure abnormal [Unknown]
  - Gait inability [Unknown]
  - Pain in extremity [Unknown]
